FAERS Safety Report 25837340 (Version 1)
Quarter: 2025Q3

REPORT INFORMATION
  Report Type: Report from Study
  Country: CA (occurrence: CA)
  Receive Date: 20250923
  Receipt Date: 20250923
  Transmission Date: 20251021
  Serious: Yes (Congenital Anomaly)
  Sender: TAKEDA
  Company Number: CA-TAKEDA-2025TUS082616

PATIENT

DRUGS (1)
  1. VEDOLIZUMAB [Suspect]
     Active Substance: VEDOLIZUMAB
     Indication: Crohn^s disease
     Route: 064

REACTIONS (2)
  - Trisomy 18 [Recovered/Resolved]
  - Foetal exposure during pregnancy [Unknown]
